FAERS Safety Report 24120102 (Version 1)
Quarter: 2024Q3

REPORT INFORMATION
  Report Type: Spontaneous
  Country: PL (occurrence: PL)
  Receive Date: 20240722
  Receipt Date: 20240722
  Transmission Date: 20241017
  Serious: Yes (Hospitalization, Other)
  Sender: ABBVIE
  Company Number: PL-ABBVIE-5843998

PATIENT
  Age: 68 Year
  Sex: Male

DRUGS (17)
  1. HUMIRA [Suspect]
     Active Substance: ADALIMUMAB
     Indication: Psoriatic arthropathy
     Route: 058
  2. VENETOCLAX [Suspect]
     Active Substance: VENETOCLAX
     Indication: Acute myeloid leukaemia
     Route: 048
     Dates: start: 20231005
  3. AZACITIDINE [Concomitant]
     Active Substance: AZACITIDINE
     Indication: Acute myeloid leukaemia
     Dosage: 75 MG/M2?CYCLE 3
     Dates: start: 20231209, end: 20231215
  4. AZACITIDINE [Concomitant]
     Active Substance: AZACITIDINE
     Indication: Acute myeloid leukaemia
     Dosage: 75 MG/M2?CYCLE 1
     Dates: start: 20231005, end: 20231010
  5. AZACITIDINE [Concomitant]
     Active Substance: AZACITIDINE
     Indication: Acute myeloid leukaemia
     Dosage: 75 MG/M2?CYCLE 5
     Dates: start: 20240214, end: 20240221
  6. AZACITIDINE [Concomitant]
     Active Substance: AZACITIDINE
     Indication: Acute myeloid leukaemia
     Dosage: 75 MG/M2?CYCLE 4
     Dates: start: 20240111, end: 20240119
  7. AZACITIDINE [Concomitant]
     Active Substance: AZACITIDINE
     Indication: Acute myeloid leukaemia
     Dosage: 75 MG/M2?CYCLE 2
     Dates: start: 20231108, end: 20231114
  8. BUSULFAN [Concomitant]
     Active Substance: BUSULFAN
     Indication: Surgical preconditioning
     Dosage: 3.2 MG/KG
     Dates: start: 20240311, end: 20240312
  9. ARANESP [Concomitant]
     Active Substance: DARBEPOETIN ALFA
     Indication: Product used for unknown indication
     Dates: start: 20240516
  10. ARANESP [Concomitant]
     Active Substance: DARBEPOETIN ALFA
     Indication: Product used for unknown indication
     Dates: start: 20240620
  11. RAMIPRIL [Concomitant]
     Active Substance: RAMIPRIL
     Indication: Product used for unknown indication
  12. FLUDARABINE [Concomitant]
     Active Substance: FLUDARABINE PHOSPHATE
     Indication: Surgical preconditioning
     Dosage: 25 MG/M2
     Dates: start: 20240307, end: 20240311
  13. RITUXIMAB [Concomitant]
     Active Substance: RITUXIMAB
     Indication: Product used for unknown indication
     Dosage: 375 MG/M2
     Route: 042
     Dates: start: 20240711, end: 20240711
  14. RITUXIMAB [Concomitant]
     Active Substance: RITUXIMAB
     Indication: Product used for unknown indication
     Dosage: 375 MG/M2
     Route: 042
     Dates: start: 20240704, end: 20240704
  15. THYMOGLOBULINE [Concomitant]
     Active Substance: LAPINE T-LYMPHOCYTE IMMUNE GLOBULIN
     Indication: Surgical preconditioning
     Dosage: 38.5 MILLIGRAM
     Dates: start: 20240313, end: 20240313
  16. THYMOGLOBULINE [Concomitant]
     Active Substance: LAPINE T-LYMPHOCYTE IMMUNE GLOBULIN
     Indication: Surgical preconditioning
     Dosage: 154 MILLIGRAM
     Dates: start: 20240314, end: 20240314
  17. THYMOGLOBULINE [Concomitant]
     Active Substance: LAPINE T-LYMPHOCYTE IMMUNE GLOBULIN
     Indication: Surgical preconditioning
     Dosage: 154 MILLIGRAM
     Dates: start: 20240316, end: 20240316

REACTIONS (5)
  - Aplasia pure red cell [Unknown]
  - Haemoglobin decreased [Unknown]
  - Minimal residual disease [Unknown]
  - Haematotoxicity [Unknown]
  - Granulocytopenia [Unknown]

NARRATIVE: CASE EVENT DATE: 20240101
